FAERS Safety Report 23628877 (Version 3)
Quarter: 2024Q1

REPORT INFORMATION
  Report Type: Spontaneous
  Country: CA (occurrence: CA)
  Receive Date: 20240313
  Receipt Date: 20240327
  Transmission Date: 20240409
  Serious: Yes (Other)
  Sender: FDA-Public Use
  Company Number: CA-PFIZER INC-202400061837

PATIENT
  Age: 54 Year
  Sex: Female

DRUGS (5)
  1. ABRILADA [Suspect]
     Active Substance: ADALIMUMAB-AFZB
     Indication: Psoriatic arthropathy
     Dosage: 40 MG, EVERY 2 WEEK, PREFILLED PEN
     Route: 058
     Dates: start: 20240124
  2. BISOPROLOL [Concomitant]
     Active Substance: BISOPROLOL\BISOPROLOL FUMARATE
     Dosage: 5 MG, 1X/DAY
     Route: 065
  3. LEFLUNOMIDE [Concomitant]
     Active Substance: LEFLUNOMIDE
     Dosage: 20 MG, 1X/DAY
     Route: 065
  4. PREDNISONE [Concomitant]
     Active Substance: PREDNISONE
     Dosage: 20 MG, WEEKLY (TAPERING DOSE)
  5. PREGABALIN [Concomitant]
     Active Substance: PREGABALIN
     Dosage: 50 MG, 1X/DAY
     Route: 065

REACTIONS (3)
  - Rheumatoid arthritis [Recovered/Resolved]
  - Head discomfort [Not Recovered/Not Resolved]
  - Dizziness [Not Recovered/Not Resolved]

NARRATIVE: CASE EVENT DATE: 20240311
